APPROVED DRUG PRODUCT: CLINISOL 15% SULFITE FREE IN PLASTIC CONTAINER
Active Ingredient: AMINO ACIDS
Strength: 15% (15GM/100ML)
Dosage Form/Route: INJECTABLE;INJECTION
Application: A020512 | Product #001
Applicant: BAXTER HEALTHCARE CORP
Approved: Aug 30, 1996 | RLD: No | RS: No | Type: RX